FAERS Safety Report 18968921 (Version 2)
Quarter: 2021Q4

REPORT INFORMATION
  Report Type: Report from Study
  Country: US (occurrence: US)
  Receive Date: 20210304
  Receipt Date: 20211211
  Transmission Date: 20220303
  Serious: Yes (Other)
  Sender: FDA-Public Use
  Company Number: US-NOVARTISPH-NVSC2021US043595

PATIENT
  Age: 59 Year
  Sex: Male

DRUGS (1)
  1. ENTRESTO [Suspect]
     Active Substance: SACUBITRIL\VALSARTAN
     Indication: Product used for unknown indication
     Dosage: 100 MG, BID (49/51MG)
     Route: 048

REACTIONS (9)
  - Epilepsy [Unknown]
  - Yawning [Unknown]
  - Throat clearing [Unknown]
  - Moaning [Unknown]
  - Memory impairment [Unknown]
  - Fall [Unknown]
  - Peripheral swelling [Not Recovered/Not Resolved]
  - Carpal tunnel syndrome [Unknown]
  - Cough [Unknown]

NARRATIVE: CASE EVENT DATE: 20210801
